FAERS Safety Report 13574132 (Version 1)
Quarter: 2017Q2

REPORT INFORMATION
  Report Type: Spontaneous
  Country: US (occurrence: US)
  Receive Date: 20170523
  Receipt Date: 20170523
  Transmission Date: 20170830
  Serious: Yes (Hospitalization, Other)
  Sender: FDA-Public Use
  Company Number: US-KALEO, INC-EPIN20170003

PATIENT
  Age: 16 Year
  Sex: Male

DRUGS (1)
  1. EPINEPHRINE. [Suspect]
     Active Substance: EPINEPHRINE
     Indication: URTICARIA
     Dosage: 0.5 MG

REACTIONS (7)
  - Hypertension [Unknown]
  - Tachycardia [Recovered/Resolved]
  - Medication error [Recovered/Resolved]
  - Oxygen saturation decreased [Recovered/Resolved]
  - Stress cardiomyopathy [Recovered/Resolved]
  - Troponin increased [Unknown]
  - Respiratory distress [Recovered/Resolved]
